FAERS Safety Report 12553731 (Version 1)
Quarter: 2016Q3

REPORT INFORMATION
  Report Type: Spontaneous
  Country: US (occurrence: US)
  Receive Date: 20160713
  Receipt Date: 20160713
  Transmission Date: 20161109
  Serious: No
  Sender: FDA-Public Use
  Company Number: US-NOVOPROD-496436

PATIENT
  Sex: Female

DRUGS (1)
  1. SAXENDA [Suspect]
     Active Substance: LIRAGLUTIDE
     Indication: TYPE 2 DIABETES MELLITUS
     Dosage: 2.4 MG, QD
     Route: 058
     Dates: start: 201605

REACTIONS (3)
  - Weight loss poor [Unknown]
  - Insomnia [Unknown]
  - Flatulence [Unknown]
